FAERS Safety Report 14878510 (Version 1)
Quarter: 2018Q2

REPORT INFORMATION
  Report Type: Spontaneous
  Country: US (occurrence: US)
  Receive Date: 20180511
  Receipt Date: 20180511
  Transmission Date: 20180711
  Serious: No
  Sender: FDA-Public Use
  Company Number: US-UNITED THERAPEUTICS-UNT-2018-006484

PATIENT
  Age: 23 Year
  Sex: Female
  Weight: 102.4 kg

DRUGS (3)
  1. ORENITRAM [Suspect]
     Active Substance: TREPROSTINIL
     Dosage: UNK
     Route: 048
  2. ORENITRAM [Suspect]
     Active Substance: TREPROSTINIL
     Indication: PULMONARY ARTERIAL HYPERTENSION
     Dosage: 1 MG, TID
     Route: 048
     Dates: start: 20171018
  3. LETAIRIS [Concomitant]
     Active Substance: AMBRISENTAN
     Indication: PRODUCT USED FOR UNKNOWN INDICATION
     Route: 065

REACTIONS (9)
  - Pruritus [Unknown]
  - Facial pain [Unknown]
  - Flushing [Unknown]
  - Headache [Unknown]
  - Vomiting [Unknown]
  - Weight decreased [Unknown]
  - Exercise tolerance decreased [Unknown]
  - Oropharyngeal pain [Unknown]
  - Nausea [Unknown]

NARRATIVE: CASE EVENT DATE: 20180506
